FAERS Safety Report 11030784 (Version 1)
Quarter: 2015Q2

REPORT INFORMATION
  Report Type: Spontaneous
  Country: US (occurrence: None)
  Receive Date: 20150414
  Receipt Date: 20150414
  Transmission Date: 20150821
  Serious: Yes (Hospitalization)
  Sender: FDA-Public Use
  Company Number: None

PATIENT
  Age: 46 Year
  Sex: Female
  Weight: 99.79 kg

DRUGS (1)
  1. CONTRAVE [Suspect]
     Active Substance: BUPROPION HYDROCHLORIDE\NALTREXONE HYDROCHLORIDE
     Indication: WEIGHT LOSS DIET
     Dosage: TAKEN BY MOUTH, 2 PILLS
     Route: 048
     Dates: start: 20141215, end: 20150125

REACTIONS (1)
  - Colitis [None]

NARRATIVE: CASE EVENT DATE: 20150112
